FAERS Safety Report 5838786-1 (Version None)
Quarter: 2008Q3

REPORT INFORMATION
  Report Type: 
  Country: None (occurrence: None)
  Receive Date: 20080808
  Receipt Date: 20080725
  Transmission Date: 20090109
  Serious: Yes (Death)
  Sender: FDA-Public Use
  Company Number: JP-BRISTOL-MYERS SQUIBB COMPANY-14284392

PATIENT
  Age: 39 Year
  Sex: Male

DRUGS (5)
  1. EFAVIRENZ [Suspect]
     Indication: HIV INFECTION
     Route: 048
     Dates: start: 20080709, end: 20080715
  2. RALTEGRAVIR [Suspect]
     Indication: HIV INFECTION
     Dosage: RALTEGRAVIR POTASSIUM TABS
     Route: 048
     Dates: start: 20080709, end: 20080715
  3. NORVIR [Suspect]
     Indication: HIV INFECTION
     Route: 048
     Dates: start: 20080709, end: 20080715
  4. PREZISTA [Suspect]
     Indication: HIV INFECTION
     Dosage: TABS
     Route: 048
     Dates: start: 20080709, end: 20080715
  5. EMTRIVA [Suspect]
     Indication: HIV INFECTION
     Dosage: CAPS
     Route: 048
     Dates: start: 20080709, end: 20080715

REACTIONS (1)
  - RESPIRATORY FAILURE [None]
